FAERS Safety Report 4745393-0 (Version None)
Quarter: 2005Q3

REPORT INFORMATION
  Report Type: 
  Country: None (occurrence: None)
  Receive Date: 20050815
  Receipt Date: 20050801
  Transmission Date: 20060218
  Serious: Yes (Other)
  Sender: FDA-Public Use
  Company Number: 2005102820

PATIENT
  Age: 45 Year
  Sex: Female
  Weight: 88.905 kg

DRUGS (3)
  1. NEOSPORIN [Suspect]
     Indication: HERPES SIMPLEX
     Dosage: ONE APPLICATION ONCE, TOPICAL
     Route: 061
     Dates: start: 20050717, end: 20050717
  2. LISINOPRIL [Concomitant]
  3. PAROXETINE HCL [Concomitant]

REACTIONS (1)
  - HYPERSENSITIVITY [None]
